FAERS Safety Report 8855696 (Version 1)
Quarter: 2012Q4

REPORT INFORMATION
  Report Type: 
  Country: US (occurrence: US)
  Receive Date: 20121023
  Receipt Date: 20121023
  Transmission Date: 20130627
  Serious: No
  Sender: FDA-Public Use
  Company Number: US-AMGEN-USASP2012059167

PATIENT
  Age: 56 Year
  Sex: Female
  Weight: 250 kg

DRUGS (14)
  1. ENBREL [Suspect]
     Indication: PRODUCT USED FOR UNKNOWN INDICATION
     Dosage: 50 mg, qwk
     Route: 058
  2. SINGULAIR [Concomitant]
     Dosage: 10 mg, UNK
  3. METFORMIN [Concomitant]
     Dosage: 500 mg, UNK
  4. LEVOTHYROXIN ALMUS [Concomitant]
     Dosage: 100 mug, UNK
  5. LISINOPRIL [Concomitant]
     Dosage: 40 mg, UNK
  6. METHOTREXATE [Concomitant]
     Dosage: 2.5 mg, UNK
  7. MULTIVITAMINS, PLAIN [Concomitant]
     Dosage: UNK
  8. FISH OIL [Concomitant]
     Dosage: UNK
  9. VITAMIN D3 [Concomitant]
     Dosage: 5000 unit, UNK
  10. VITAMIN C                          /00008001/ [Concomitant]
     Dosage: 100 mg, UNK
  11. FOLIC ACID [Concomitant]
     Dosage: UNK
  12. VITAMIN B [Concomitant]
     Dosage: UNK
  13. CYMBALTA [Concomitant]
     Dosage: 20 mg, UNK
  14. XYZAL [Concomitant]
     Dosage: 5 mg, UNK

REACTIONS (1)
  - Back pain [Unknown]
